FAERS Safety Report 20429653 (Version 1)
Quarter: 2022Q1

REPORT INFORMATION
  Report Type: Report from Study
  Country: FR (occurrence: FR)
  Receive Date: 20220204
  Receipt Date: 20220204
  Transmission Date: 20220423
  Serious: Yes (Death)
  Sender: FDA-Public Use
  Company Number: FR-SERVIER-S19008500

PATIENT

DRUGS (13)
  1. ONCASPAR [Suspect]
     Active Substance: PEGASPARGASE
     Indication: Acute lymphocytic leukaemia
     Dosage: 1463 IU,
     Route: 042
     Dates: start: 20190718, end: 20190718
  2. BETAMETHASONE [Suspect]
     Active Substance: BETAMETHASONE
     Indication: Acute lymphocytic leukaemia
     Dosage: 10 MG
     Route: 048
     Dates: start: 20190715, end: 20190804
  3. VINCRISTINE [Suspect]
     Active Substance: VINCRISTINE
     Indication: Acute lymphocytic leukaemia
     Dosage: 1.7 MG
     Route: 042
     Dates: start: 20190715, end: 20190729
  4. DAUNORUBICIN [Suspect]
     Active Substance: DAUNORUBICIN
     Indication: Acute lymphocytic leukaemia
     Dosage: 29.5 MG
     Route: 042
     Dates: start: 20190715, end: 20190729
  5. TN UNSPECIFIED [Concomitant]
     Indication: Acute lymphocytic leukaemia
     Dosage: 12 MG
     Route: 037
     Dates: start: 20190718, end: 20190718
  6. MAGNESIUM [Concomitant]
     Active Substance: MAGNESIUM
     Indication: Hypomagnesaemia
     Dosage: 3 DF
     Route: 048
     Dates: start: 20190604
  7. BACTRIM [Concomitant]
     Active Substance: SULFAMETHOXAZOLE\TRIMETHOPRIM
     Indication: Antifungal prophylaxis
     Dosage: 800 MG, 3 TIMES PER WEEK
     Route: 048
     Dates: start: 20190213
  8. LEVOTHYROXINE [Concomitant]
     Active Substance: LEVOTHYROXINE
     Indication: Hypothyroidism
     Dosage: 5 DROP
     Route: 048
  9. TN UNSPECIFIED [Concomitant]
     Indication: Diabetes mellitus
     Dosage: 3 U
     Route: 058
     Dates: start: 20190802
  10. TN UNSPECIFIED [Concomitant]
     Indication: Renal failure
     Dosage: 65 MG
     Route: 042
     Dates: start: 20190802
  11. TN UNSPECIFIED [Concomitant]
     Indication: Mucosal inflammation
     Dosage: 2 MG
     Route: 042
     Dates: start: 20190801
  12. NUBAIN [Concomitant]
     Active Substance: NALBUPHINE HYDROCHLORIDE
     Indication: Mucosal inflammation
     Dosage: 26 MG
     Route: 042
     Dates: start: 20190801
  13. OLIMEL [Concomitant]
     Active Substance: AMINO ACIDS\DEXTROSE\SOYBEAN OIL
     Indication: Malnutrition
     Dosage: 1 L
     Route: 042
     Dates: start: 20190801

REACTIONS (2)
  - Pulmonary embolism [Fatal]
  - Potentiating drug interaction [Fatal]

NARRATIVE: CASE EVENT DATE: 20190804
